FAERS Safety Report 8492651-2 (Version None)
Quarter: 2012Q3

REPORT INFORMATION
  Report Type: 
  Country: None (occurrence: None)
  Receive Date: 20120706
  Receipt Date: 20120702
  Transmission Date: 20120928
  Serious: No
  Sender: FDA-Public Use
  Company Number: US-BAYER-2012-067333

PATIENT

DRUGS (2)
  1. TRAMADOL HCL [Concomitant]
  2. ALEVE (CAPLET) [Suspect]
     Route: 048

REACTIONS (2)
  - PAIN [None]
  - INSOMNIA [None]
